FAERS Safety Report 9385737 (Version 1)
Quarter: 2013Q3

REPORT INFORMATION
  Report Type: Spontaneous
  Country: US (occurrence: US)
  Receive Date: 20130705
  Receipt Date: 20130705
  Transmission Date: 20140515
  Serious: Yes (Death)
  Sender: FDA-Public Use
  Company Number: US-BRISTOL-MYERS SQUIBB COMPANY-19046689

PATIENT
  Age: 43 Year
  Sex: Female

DRUGS (10)
  1. ABILIFY [Suspect]
     Indication: ANXIETY
     Dates: end: 20130430
  2. ABILIFY [Suspect]
     Indication: DEPRESSION
     Dates: end: 20130430
  3. ATIVAN [Concomitant]
  4. NEXIUM [Concomitant]
  5. DUONEB [Concomitant]
  6. ALBUTEROL [Concomitant]
  7. SERTRALINE [Concomitant]
  8. GABAPENTIN [Concomitant]
  9. ADVAIR [Concomitant]
  10. VITAMIN D3 [Concomitant]

REACTIONS (1)
  - Death [Fatal]
